FAERS Safety Report 9792963 (Version 1)
Quarter: 2014Q1

REPORT INFORMATION
  Report Type: Spontaneous
  Country: KR (occurrence: KR)
  Receive Date: 20140102
  Receipt Date: 20140102
  Transmission Date: 20141002
  Serious: Yes (Other)
  Sender: FDA-Public Use
  Company Number: KR-JNJFOC-20131216786

PATIENT
  Sex: 0

DRUGS (2)
  1. ITRACONAZOLE [Suspect]
     Indication: ANTIFUNGAL PROPHYLAXIS
     Dosage: 200 MG EVERY 12 HOURS FOR THE FIRST 48 HOURS AND FOLLOWED BY 200 MG ONCE A DAY FROM DAY 3 TO 14
     Route: 042
  2. ITRACONAZOLE [Suspect]
     Indication: ANTIFUNGAL PROPHYLAXIS
     Dosage: 200 MG EVERY 12 HOURS FOR THE FIRST 48 HOURS AND FOLLOWED BY 200 MG ONCE A DAY FROM DAY 3 TO 14
     Route: 048

REACTIONS (4)
  - Hepatotoxicity [Unknown]
  - Nephropathy toxic [Unknown]
  - Hypokalaemia [Unknown]
  - Drug ineffective [Unknown]
